FAERS Safety Report 6181314-4 (Version None)
Quarter: 2009Q2

REPORT INFORMATION
  Report Type: 
  Country: None (occurrence: None)
  Receive Date: 20090506
  Receipt Date: 20090501
  Transmission Date: 20091009
  Serious: Yes (Death)
  Sender: FDA-Public Use
  Company Number: GB-BRISTOL-MYERS SQUIBB COMPANY-14587794

PATIENT
  Age: 65 Year
  Sex: Male
  Weight: 76 kg

DRUGS (15)
  1. CARBOPLATIN [Suspect]
     Indication: NON-SMALL CELL LUNG CANCER
     Dosage: INITIATED ON 09OCT08.
     Dates: start: 20090119, end: 20090119
  2. PACLITAXEL [Suspect]
     Indication: NON-SMALL CELL LUNG CANCER
     Dosage: INITIATED ON 09OCT08.
     Dates: start: 20090129, end: 20090129
  3. AXITINIB [Suspect]
     Indication: NON-SMALL CELL LUNG CANCER
     Dosage: WITHDRAWN ON 11MAR09
     Route: 048
     Dates: start: 20081009, end: 20090311
  4. AMLODIPINE [Concomitant]
     Indication: HYPERTENSION
     Dates: start: 20080910
  5. METOCLOPRAMIDE [Concomitant]
     Indication: NAUSEA
     Dates: start: 20090101, end: 20090314
  6. TRAMADOL HCL [Concomitant]
     Indication: PAIN
     Dates: start: 20081001
  7. PARACETAMOL [Concomitant]
     Indication: PAIN
     Dates: start: 20080901
  8. NULYTELY [Concomitant]
     Indication: CONSTIPATION
     Dates: start: 20090313, end: 20090321
  9. CLOBETASOL PROPIONATE [Concomitant]
     Indication: SKIN LESION
     Dates: start: 20090314, end: 20090321
  10. TERBINAFINE HCL [Concomitant]
     Indication: SKIN LESION
     Dates: start: 20090314, end: 20090321
  11. FLUCLOXACILLIN [Concomitant]
     Indication: STAPHYLOCOCCAL INFECTION
     Dates: start: 20090128, end: 20090311
  12. RIFAMPICIN [Concomitant]
     Indication: INFECTION
     Dates: start: 20090320, end: 20090321
  13. MIDAZOLAM HCL [Concomitant]
     Indication: RESTLESSNESS
     Dates: start: 20090322
  14. MORPHINE [Concomitant]
     Indication: PAIN
     Dates: start: 20090322
  15. GENTAMICIN [Concomitant]
     Indication: INFECTION
     Dates: start: 20090323, end: 20090323

REACTIONS (1)
  - MENINGEAL DISORDER [None]
